FAERS Safety Report 8957014 (Version 1)
Quarter: 2012Q4

REPORT INFORMATION
  Report Type: 
  Country: DE (occurrence: DE)
  Receive Date: 20121210
  Receipt Date: 20121210
  Transmission Date: 20130627
  Serious: Yes (Other)
  Sender: FDA-Public Use
  Company Number: DE-ROCHE-1152628

PATIENT
  Age: 23 Year
  Sex: Female

DRUGS (3)
  1. ROACTEMRA [Suspect]
     Indication: RHEUMATOID ARTHRITIS
     Route: 042
  2. ALUMINUM HYDROXIDE\DIPHENHYDRAMINE\LIDOCAINE\MAGNESIUM HYDROXIDE [Suspect]
     Indication: PRODUCT USED FOR UNKNOWN INDICATION
     Route: 065
  3. PREDNISOLONE [Concomitant]
     Indication: RHEUMATOID ARTHRITIS
     Dosage: 30mg (5mg/week)
     Route: 065

REACTIONS (6)
  - Liver function test abnormal [Recovered/Resolved]
  - Hepatitis [Recovered/Resolved]
  - Depression [Unknown]
  - Pain [Unknown]
  - Oedema peripheral [Unknown]
  - Joint swelling [Unknown]
